FAERS Safety Report 10255426 (Version 1)
Quarter: 2014Q2

REPORT INFORMATION
  Report Type: Spontaneous
  Country: US (occurrence: US)
  Receive Date: 20140624
  Receipt Date: 20140624
  Transmission Date: 20141212
  Serious: No
  Sender: FDA-Public Use
  Company Number: US-BAYER-2014-094322

PATIENT
  Age: 53 Year
  Sex: Male
  Weight: 104 kg

DRUGS (1)
  1. ALEVE TABLET [Suspect]
     Indication: ARTHRITIS
     Dosage: DF
     Route: 048

REACTIONS (1)
  - Incorrect drug administration duration [None]
